FAERS Safety Report 9206399 (Version 1)
Quarter: 2013Q2

REPORT INFORMATION
  Report Type: Report from Study
  Country: US (occurrence: US)
  Receive Date: 20130403
  Receipt Date: 20130403
  Transmission Date: 20140414
  Serious: Yes (Hospitalization)
  Sender: FDA-Public Use
  Company Number: PHHY2013US031746

PATIENT
  Age: 60 Year
  Sex: Female
  Weight: 74.92 kg

DRUGS (2)
  1. EVEROLIMUS [Suspect]
     Indication: OVARIAN EPITHELIAL CANCER
     Dosage: UNK
     Route: 048
     Dates: start: 20120713, end: 20121030
  2. BEVACIZUMAB [Suspect]
     Indication: OVARIAN EPITHELIAL CANCER
     Dosage: 10 MG/KG, UNK
     Route: 042
     Dates: start: 20120713, end: 20121019

REACTIONS (9)
  - Supraventricular tachycardia [Recovered/Resolved]
  - Heart rate increased [Unknown]
  - Ascites [Recovered/Resolved]
  - Embolism [Recovered/Resolved]
  - Dizziness [Unknown]
  - Dyspnoea [Unknown]
  - Ovarian epithelial cancer [Unknown]
  - Malignant neoplasm progression [Unknown]
  - Metastases to liver [Unknown]
